FAERS Safety Report 6293906-2 (Version None)
Quarter: 2009Q3

REPORT INFORMATION
  Report Type: 
  Country: None (occurrence: None)
  Receive Date: 20090803
  Receipt Date: 20090618
  Transmission Date: 20100115
  Serious: No
  Sender: FDA-Public Use
  Company Number: US-BAYER-200924360NA

PATIENT
  Sex: Female

DRUGS (1)
  1. YAZ [Suspect]
     Indication: METRORRHAGIA
     Route: 048
     Dates: start: 20080101, end: 20090101

REACTIONS (2)
  - HYPOMENORRHOEA [None]
  - MENSTRUATION IRREGULAR [None]
